FAERS Safety Report 14973762 (Version 3)
Quarter: 2018Q2

REPORT INFORMATION
  Report Type: Spontaneous
  Country: MX (occurrence: MX)
  Receive Date: 20180605
  Receipt Date: 20180626
  Transmission Date: 20180711
  Serious: Yes (Hospitalization, Other)
  Sender: FDA-Public Use
  Company Number: MX-009507513-1806MEX001353

PATIENT
  Age: 19 Year
  Sex: Female

DRUGS (1)
  1. IMPLANON [Suspect]
     Active Substance: ETONOGESTREL
     Dosage: 1 IMPLANT, UNK
     Route: 059
     Dates: start: 20160301, end: 201803

REACTIONS (4)
  - Abdominal pain [Unknown]
  - Thrombocytopenic purpura [Unknown]
  - Pregnancy with implant contraceptive [Unknown]
  - Unintended pregnancy [Unknown]

NARRATIVE: CASE EVENT DATE: 2018
